FAERS Safety Report 6534065-8 (Version None)
Quarter: 2009Q4

REPORT INFORMATION
  Report Type: 
  Country: None (occurrence: None)
  Receive Date: 20091214
  Receipt Date: 20081024
  Transmission Date: 20100525
  Serious: Yes (Life-Threatening)
  Sender: FDA-Public Use
  Company Number: 586402

PATIENT
  Age: 51 Year
  Sex: Male
  Weight: 85.3 kg

DRUGS (12)
  1. PEGASYS [Suspect]
     Indication: HEPATITIS C
     Dosage: 180 UG 1 PER WEEK SUBCUTANEOUS
     Route: 058
     Dates: start: 20080204
  2. COPEGUS [Suspect]
     Indication: HEPATITIS C
     Dosage: 1000 MG DAILY 2 PER DAY ORAL
     Route: 048
     Dates: start: 20080204
  3. LUNESTA [Suspect]
     Indication: DRUG USE FOR UNKNOWN INDICATION
     Dosage: 3 MG DAILY
     Dates: start: 20071107, end: 20080101
  4. SOMA [Suspect]
     Indication: DRUG USE FOR UNKNOWN INDICATION
     Dosage: 350 MG 3 PER DAY ORAL
     Route: 048
     Dates: start: 20080520
  5. TRAZODONE HCL [Suspect]
     Indication: DRUG USE FOR UNKNOWN INDICATION
     Dosage: 100 MG DAILY
     Dates: start: 20070829, end: 20070927
  6. XANAX [Concomitant]
  7. FLEXERIL [Concomitant]
  8. WELLBUTRIN XL [Concomitant]
  9. PHENERGAN HCL [Concomitant]
  10. ZOLOFT [Concomitant]
  11. DARVOCET (DEXTROPROPOXYPHENE/PARACETAMOL) [Concomitant]
  12. VITAMIN B12 [Concomitant]

REACTIONS (4)
  - DEPRESSION [None]
  - INTENTIONAL OVERDOSE [None]
  - PAIN [None]
  - SUICIDE ATTEMPT [None]
